FAERS Safety Report 5517931-1 (Version None)
Quarter: 2007Q4

REPORT INFORMATION
  Report Type: 
  Country: None (occurrence: None)
  Receive Date: 20071107
  Receipt Date: 20071003
  Transmission Date: 20080405
  Serious: Yes (Other)
  Sender: FDA-Public Use
  Company Number: 17646

PATIENT
  Sex: Female

DRUGS (2)
  1. CARBOPLATIN [Suspect]
     Indication: NON-SMALL CELL LUNG CANCER
  2. TAXOL [Suspect]
     Indication: NON-SMALL CELL LUNG CANCER

REACTIONS (1)
  - NON-SMALL CELL LUNG CANCER [None]
